FAERS Safety Report 14958631 (Version 1)
Quarter: 2018Q2

REPORT INFORMATION
  Report Type: Report from Study
  Country: KR (occurrence: KR)
  Receive Date: 20180531
  Receipt Date: 20180531
  Transmission Date: 20180711
  Serious: Yes (Hospitalization)
  Sender: FDA-Public Use
  Company Number: KR-SA-2018SA141233

PATIENT
  Age: 71 Year
  Sex: Female

DRUGS (2)
  1. APIDRA [Suspect]
     Active Substance: INSULIN GLULISINE
     Indication: DIABETES MELLITUS
     Dosage: 8-10-4 U, TID
     Route: 058
     Dates: start: 2018
  2. INSULIN GLARGINE [Suspect]
     Active Substance: INSULIN GLARGINE
     Indication: DIABETES MELLITUS
     Dosage: 18 U, QD
     Route: 058

REACTIONS (3)
  - Memory impairment [Recovered/Resolved]
  - Product storage error [Unknown]
  - Illusion [Recovered/Resolved]

NARRATIVE: CASE EVENT DATE: 20180512
